FAERS Safety Report 4351511-9 (Version None)
Quarter: 2004Q2

REPORT INFORMATION
  Report Type: 
  Country: None (occurrence: None)
  Receive Date: 20040428
  Receipt Date: 20040412
  Transmission Date: 20050107
  Serious: Yes (Death)
  Sender: FDA-Public Use
  Company Number: USA040464354

PATIENT
  Age: 61 Year
  Sex: Male

DRUGS (3)
  1. ZYPREXA ZYDIS-DISPERSIBLE (OLAZAPINE) (OLANZAPINE) [Suspect]
     Dosage: 10 MG DAY
     Dates: start: 20031204, end: 20031205
  2. CAPOTEN [Concomitant]
  3. LEXAPRO [Concomitant]

REACTIONS (4)
  - ARRHYTHMIA [None]
  - CIRCULATORY COLLAPSE [None]
  - CORONARY ARTERY STENOSIS [None]
  - DRUG LEVEL INCREASED [None]
